FAERS Safety Report 11443435 (Version 3)
Quarter: 2016Q2

REPORT INFORMATION
  Report Type: Report from Study
  Country: US (occurrence: US)
  Receive Date: 20150901
  Receipt Date: 20160502
  Transmission Date: 20160815
  Serious: Yes (Other)
  Sender: FDA-Public Use
  Company Number: US-AMGEN-USASP2015087345

PATIENT
  Age: 70 Year
  Sex: Female

DRUGS (1)
  1. ENBREL [Suspect]
     Active Substance: ETANERCEPT
     Indication: RHEUMATOID ARTHRITIS
     Dosage: 50 MG, ONCE WEEKLY
     Route: 065
     Dates: start: 201407

REACTIONS (5)
  - Ovarian disorder [Unknown]
  - Confusional state [Unknown]
  - Pruritus genital [Unknown]
  - Smear cervix abnormal [Unknown]
  - Uterine infection [Not Recovered/Not Resolved]

NARRATIVE: CASE EVENT DATE: 2014
